FAERS Safety Report 10196694 (Version 1)
Quarter: 2014Q2

REPORT INFORMATION
  Report Type: Spontaneous
  Country: GB (occurrence: None)
  Receive Date: 20140522
  Receipt Date: 20140522
  Transmission Date: 20141212
  Serious: Yes (Life-Threatening, Other)
  Sender: FDA-Public Use
  Company Number: AUR-APL-2014-05957

PATIENT
  Sex: Male

DRUGS (1)
  1. CIPROFLOXACIN (CIPROFLOXACIN) [Suspect]
     Indication: INFECTION
     Dates: start: 201311, end: 201311

REACTIONS (10)
  - Dysphagia [None]
  - Haematochezia [None]
  - Nephrolithiasis [None]
  - Liver disorder [None]
  - Wrong technique in drug usage process [None]
  - Respiratory arrest [None]
  - Apparent death [None]
  - Eye disorder [None]
  - Abnormal faeces [None]
  - Laboratory test abnormal [None]
